FAERS Safety Report 10020606 (Version 1)
Quarter: 2014Q1

REPORT INFORMATION
  Report Type: Spontaneous
  Country: FR (occurrence: FR)
  Receive Date: 20140319
  Receipt Date: 20140319
  Transmission Date: 20141002
  Serious: Yes (Hospitalization)
  Sender: FDA-Public Use
  Company Number: PHHY2014FR031917

PATIENT
  Age: 75 Year
  Sex: Female

DRUGS (6)
  1. CELIPROLOL [Suspect]
     Dosage: 200 MG, QD
     Route: 048
     Dates: end: 20080313
  2. PRAVASTATIN [Suspect]
     Dosage: 1 DF, QD
     Route: 048
     Dates: start: 2006
  3. RAMIPRIL [Suspect]
     Dosage: 5 MG, QD
     Route: 048
     Dates: start: 2005
  4. KARDEGIC [Suspect]
     Dosage: 1 DF, QD
     Route: 048
     Dates: start: 2006
  5. HYDREA [Suspect]
     Route: 048
     Dates: start: 200712, end: 20080114
  6. VASTAREL [Suspect]
     Dosage: 1 DF, BID
     Route: 048
     Dates: end: 20080313

REACTIONS (1)
  - Interstitial lung disease [Unknown]
